FAERS Safety Report 18898634 (Version 1)
Quarter: 2021Q1

REPORT INFORMATION
  Report Type: Spontaneous
  Country: US (occurrence: US)
  Receive Date: 20210214
  Receipt Date: 20210214
  Transmission Date: 20210420
  Serious: Yes (Disabling)
  Sender: FDA-Public Use
  Company Number: None

PATIENT
  Age: 45 Year
  Sex: Male
  Weight: 86.4 kg

DRUGS (5)
  1. PEPCID [Concomitant]
     Active Substance: FAMOTIDINE
  2. PAXIL CR [Suspect]
     Active Substance: PAROXETINE HYDROCHLORIDE
     Indication: ANXIETY
     Dates: start: 19960101, end: 20190830
  3. KLONOPIN [Concomitant]
     Active Substance: CLONAZEPAM
  4. PROPRANOLOL [Concomitant]
     Active Substance: PROPRANOLOL HYDROCHLORIDE
  5. FLOMAX [Concomitant]
     Active Substance: TAMSULOSIN HYDROCHLORIDE

REACTIONS (42)
  - Fixed eruption [None]
  - Dizziness [None]
  - Tremor [None]
  - Dysgraphia [None]
  - Photosensitivity reaction [None]
  - Muscle tightness [None]
  - Tendon discomfort [None]
  - Urinary retention [None]
  - Cognitive disorder [None]
  - Thrombosis [None]
  - Saccadic eye movement [None]
  - Coordination abnormal [None]
  - Muscle fatigue [None]
  - Pollakiuria [None]
  - Erectile dysfunction [None]
  - Haemorrhoids [None]
  - Emotional disorder [None]
  - Urinary incontinence [None]
  - Muscle spasms [None]
  - Diplopia [None]
  - Muscle contractions involuntary [None]
  - Adverse drug reaction [None]
  - Visual impairment [None]
  - Pain in extremity [None]
  - Parkinson^s disease [None]
  - Withdrawal syndrome [None]
  - Constipation [None]
  - Extraocular muscle paresis [None]
  - Feeling abnormal [None]
  - Autoimmune disorder [None]
  - Ileus [None]
  - Muscular weakness [None]
  - Magnetic resonance imaging brain abnormal [None]
  - Hiccups [None]
  - Alopecia [None]
  - Paraesthesia [None]
  - Muscle twitching [None]
  - Vitreous floaters [None]
  - Balance disorder [None]
  - Dysphagia [None]
  - Amyotrophic lateral sclerosis [None]
  - Autonomic nervous system imbalance [None]

NARRATIVE: CASE EVENT DATE: 20180101
